FAERS Safety Report 24722446 (Version 1)
Quarter: 2024Q4

REPORT INFORMATION
  Report Type: Report from Study
  Country: DE (occurrence: DE)
  Receive Date: 20241211
  Receipt Date: 20241211
  Transmission Date: 20250114
  Serious: Yes (Hospitalization)
  Sender: DAIICHI
  Company Number: DE-DSJP-DS-2024-109113-DEAA

PATIENT
  Age: 49 Year
  Sex: Female
  Weight: 47 kg

DRUGS (1)
  1. ENHERTU [Suspect]
     Active Substance: FAM-TRASTUZUMAB DERUXTECAN-NXKI
     Indication: HER2 positive breast cancer
     Dosage: 5.4 MG/KG
     Route: 042

REACTIONS (3)
  - Hypophagia [Recovered/Resolved]
  - Fluid intake reduced [Recovered/Resolved]
  - Nausea [Unknown]

NARRATIVE: CASE EVENT DATE: 20241011
